FAERS Safety Report 5152158-7 (Version None)
Quarter: 2006Q4

REPORT INFORMATION
  Report Type: 
  Country: None (occurrence: None)
  Receive Date: 20061116
  Receipt Date: 20061114
  Transmission Date: 20070319
  Serious: Yes (Hospitalization)
  Sender: FDA-Public Use
  Company Number: AR-GLAXOSMITHKLINE-A0627576A

PATIENT
  Age: 15 Year
  Sex: Female

DRUGS (2)
  1. FLIXONASE [Suspect]
     Indication: RHINITIS ALLERGIC
     Dosage: 100MCG PER DAY
     Dates: start: 20061112
  2. FRENALER [Suspect]

REACTIONS (2)
  - EUPHORIC MOOD [None]
  - TREMOR [None]
